FAERS Safety Report 9401848 (Version 1)
Quarter: 2013Q3

REPORT INFORMATION
  Report Type: Spontaneous
  Country: US (occurrence: US)
  Receive Date: 20130716
  Receipt Date: 20130716
  Transmission Date: 20140515
  Serious: Yes (Other)
  Sender: FDA-Public Use
  Company Number: US-JNJFOC-20130616749

PATIENT
  Age: 59 Year
  Sex: Female
  Weight: 79.83 kg

DRUGS (5)
  1. DURAGESIC [Suspect]
     Indication: PAIN
     Route: 062
  2. DURAGESIC [Suspect]
     Indication: PAIN
     Route: 062
  3. UNSPECIFIED FENTANYL TRANSDEMAL SYSTEM [Suspect]
     Indication: PAIN
     Route: 062
     Dates: start: 2013, end: 201306
  4. UNSPECIFIED FENTANYL TRANSDEMAL SYSTEM [Suspect]
     Indication: PAIN
     Route: 062
  5. OXYCODONE [Concomitant]
     Indication: BREAKTHROUGH PAIN
     Route: 065

REACTIONS (10)
  - Hepatomegaly [Not Recovered/Not Resolved]
  - Bladder disorder [Not Recovered/Not Resolved]
  - Renal mass [Not Recovered/Not Resolved]
  - Feeling abnormal [Not Recovered/Not Resolved]
  - Restless legs syndrome [Recovered/Resolved]
  - Insomnia [Recovered/Resolved]
  - Withdrawal syndrome [Recovered/Resolved]
  - Drug effect decreased [Not Recovered/Not Resolved]
  - Wrong technique in drug usage process [Unknown]
  - Product quality issue [None]
